FAERS Safety Report 7948431-7 (Version None)
Quarter: 2011Q4

REPORT INFORMATION
  Report Type: 
  Country: None (occurrence: None)
  Receive Date: 20111125
  Receipt Date: 20111111
  Transmission Date: 20120403
  Serious: Yes (Hospitalization)
  Sender: FDA-Public Use
  Company Number: TPG2011A03093

PATIENT
  Age: 65 Year
  Sex: Male

DRUGS (7)
  1. KARVEZIDE (HYDROCHLOROTHIAZIDE, IRBESARTAN) [Concomitant]
  2. RASILEZ (ALISKIREN) [Concomitant]
  3. DOXAZOSINE (DOXAZOSIN MESILATE) [Concomitant]
  4. GLURENORM (GLIQUIDONE) [Concomitant]
  5. ASPIRIN [Concomitant]
  6. ATORVASTATIN [Concomitant]
  7. ACTOS [Suspect]
     Indication: TYPE 2 DIABETES MELLITUS
     Dosage: (1-0-0) PER ORAL
     Route: 048

REACTIONS (1)
  - BLADDER CANCER [None]
